FAERS Safety Report 14873623 (Version 1)
Quarter: 2018Q2

REPORT INFORMATION
  Report Type: Spontaneous
  Country: US (occurrence: US)
  Receive Date: 20180424
  Receipt Date: 20180424
  Transmission Date: 20180711
  Serious: Yes (Hospitalization)
  Sender: FDA-Public Use
  Company Number: None

PATIENT
  Age: 25 Year
  Sex: Male
  Weight: 97.2 kg

DRUGS (14)
  1. TRAZODONE [Concomitant]
     Active Substance: TRAZODONE HYDROCHLORIDE
     Dates: start: 20171012
  2. NICOTINE GUM [Concomitant]
     Active Substance: NICOTINE
     Dates: start: 20171012
  3. HYDROXYZINE 25MG [Concomitant]
     Dates: start: 20171012, end: 20171206
  4. MULTIVITAMIN [Concomitant]
     Active Substance: VITAMINS
     Dates: start: 20180102
  5. BENZTROPINE 1MG [Concomitant]
     Active Substance: BENZTROPINE
     Dates: start: 20171012
  6. PERPHENAZINE 4MG [Concomitant]
     Dates: start: 20171012, end: 20180215
  7. PERPHENAZINE 16MG [Concomitant]
     Dates: start: 20171012, end: 20180111
  8. PERPHENAZINE 8MG [Concomitant]
     Dates: start: 20180111, end: 20180130
  9. BUSPIRONE 10MG [Concomitant]
     Dates: start: 20171012, end: 20180111
  10. BUSPIRONE [Concomitant]
     Active Substance: BUSPIRONE HYDROCHLORIDE
     Dates: start: 20180111
  11. CLOZAPINE. [Suspect]
     Active Substance: CLOZAPINE
     Indication: SCHIZOPHRENIA
     Route: 048
     Dates: start: 20180215, end: 20180420
  12. CLOZAPINE. [Suspect]
     Active Substance: CLOZAPINE
     Indication: SCHIZOPHRENIA
     Route: 048
     Dates: start: 20180323, end: 20180420
  13. AMITRIPTYLINE 100MG [Concomitant]
     Dates: start: 20171012
  14. LITHIUM. [Concomitant]
     Active Substance: LITHIUM
     Dates: start: 20180418

REACTIONS (1)
  - Neutropenia [None]

NARRATIVE: CASE EVENT DATE: 20180422
